FAERS Safety Report 10144453 (Version 3)
Quarter: 2014Q2

REPORT INFORMATION
  Report Type: Spontaneous
  Country: AU (occurrence: AU)
  Receive Date: 20140430
  Receipt Date: 20140530
  Transmission Date: 20141212
  Serious: Yes (Death, Congenital Anomaly, Other)
  Sender: FDA-Public Use
  Company Number: AU-ABBVIE-13P-008-1157695-00

PATIENT
  Sex: 0

DRUGS (2)
  1. SODIUM VALPROATE [Suspect]
     Indication: MATERNAL EXPOSURE TIMING UNSPECIFIED
     Route: 064
  2. TOPIRAMATE [Suspect]
     Indication: MATERNAL EXPOSURE TIMING UNSPECIFIED
     Route: 064

REACTIONS (7)
  - Abortion induced [Fatal]
  - Neonatal disorder [Unknown]
  - Congenital hydrocephalus [Unknown]
  - Spina bifida [Unknown]
  - Congenital anomaly [Unknown]
  - Congenital anomaly [Unknown]
  - Foetal exposure during pregnancy [Unknown]
